FAERS Safety Report 13890857 (Version 1)
Quarter: 2017Q3

REPORT INFORMATION
  Report Type: Spontaneous
  Country: US (occurrence: US)
  Receive Date: 20170822
  Receipt Date: 20170822
  Transmission Date: 20171127
  Serious: Yes (Other)
  Sender: FDA-Public Use
  Company Number: US-CIPLA LTD.-2017US13883

PATIENT

DRUGS (2)
  1. CARBOPLATIN. [Suspect]
     Active Substance: CARBOPLATIN
     Indication: RETINOBLASTOMA
     Dosage: FOUR MONTHLY CYCLES
     Route: 065
  2. ETOPOSIDE. [Suspect]
     Active Substance: ETOPOSIDE
     Indication: RETINOBLASTOMA
     Dosage: FOUR MONTHLY CYCLES
     Route: 065

REACTIONS (4)
  - Posterior capsule opacification [Recovered/Resolved]
  - Disease recurrence [Recovered/Resolved]
  - Heterochromia iridis [Recovered/Resolved]
  - Retinoblastoma [Recovered/Resolved]
